FAERS Safety Report 12807728 (Version 1)
Quarter: 2016Q4

REPORT INFORMATION
  Report Type: Report from Study
  Country: US (occurrence: US)
  Receive Date: 20161004
  Receipt Date: 20161004
  Transmission Date: 20170207
  Serious: No
  Sender: FDA-Public Use
  Company Number: US-AMGEN-USASL2016056961

PATIENT
  Age: 85 Year
  Sex: Male

DRUGS (2)
  1. XGEVA [Suspect]
     Active Substance: DENOSUMAB
     Indication: BONE CANCER
     Dosage: UNK, UNK
     Route: 065
  2. XGEVA [Suspect]
     Active Substance: DENOSUMAB
     Indication: PROSTATE CANCER

REACTIONS (1)
  - Off label use [Unknown]
